FAERS Safety Report 22255662 (Version 1)
Quarter: 2023Q2

REPORT INFORMATION
  Report Type: Spontaneous
  Country: US (occurrence: US)
  Receive Date: 20230426
  Receipt Date: 20230426
  Transmission Date: 20230722
  Serious: No
  Sender: FDA-Public Use
  Company Number: US-SA-SAC20230424000843

PATIENT
  Age: 28 Year
  Sex: Male

DRUGS (1)
  1. DUPIXENT [Suspect]
     Active Substance: DUPILUMAB
     Indication: Eosinophilic oesophagitis
     Dosage: QW
     Route: 058

REACTIONS (3)
  - Headache [Recovering/Resolving]
  - Nasal congestion [Recovering/Resolving]
  - Immune-mediated adverse reaction [Recovering/Resolving]
